FAERS Safety Report 19394797 (Version 3)
Quarter: 2021Q4

REPORT INFORMATION
  Report Type: Other
  Country: CA (occurrence: None)
  Receive Date: 20210609
  Receipt Date: 20211102
  Transmission Date: 20220304
  Serious: Yes (Other)
  Sender: FDA-Public Use
  Company Number: CA-ROCHE-2841322

PATIENT
  Sex: Male

DRUGS (4)
  1. OCREVUS [Suspect]
     Active Substance: OCRELIZUMAB
     Indication: Relapsing-remitting multiple sclerosis
     Dosage: 300 MG AT DAY 0 AND 14, THEN 600 MG EVERY 6 MONTH
     Route: 042
     Dates: start: 20191203
  2. FLAGYL [Concomitant]
     Active Substance: METRONIDAZOLE\METRONIDAZOLE HYDROCHLORIDE
  3. CEFADROXIL [Concomitant]
     Active Substance: CEFADROXIL
  4. METAMUCIL [Concomitant]
     Active Substance: PLANTAGO SEED

REACTIONS (4)
  - Diverticulitis [Not Recovered/Not Resolved]
  - Arthralgia [Not Recovered/Not Resolved]
  - Pyrexia [Not Recovered/Not Resolved]
  - Chills [Not Recovered/Not Resolved]
